FAERS Safety Report 14262367 (Version 1)
Quarter: 2017Q4

REPORT INFORMATION
  Report Type: Spontaneous
  Country: US (occurrence: None)
  Receive Date: 20171208
  Receipt Date: 20171208
  Transmission Date: 20180321
  Serious: Yes (Hospitalization)
  Sender: FDA-Public Use
  Company Number: None

PATIENT
  Age: 57 Year
  Sex: Male
  Weight: 127.92 kg

DRUGS (3)
  1. CARBAMAZEPINE 200MG [Suspect]
     Active Substance: CARBAMAZEPINE
     Indication: SEIZURE
     Route: 048
     Dates: start: 20170907, end: 20171001
  2. CARBAMAZEPINE. [Suspect]
     Active Substance: CARBAMAZEPINE
     Route: 048
  3. CARBAMAZEPINE 200MG [Suspect]
     Active Substance: CARBAMAZEPINE
     Indication: MOOD ALTERED
     Route: 048
     Dates: start: 20170907, end: 20171001

REACTIONS (5)
  - Nausea [None]
  - Malaise [None]
  - Headache [None]
  - Hyponatraemia [None]
  - Eating disorder [None]

NARRATIVE: CASE EVENT DATE: 20171001
